FAERS Safety Report 6121285-X (Version None)
Quarter: 2009Q1

REPORT INFORMATION
  Report Type: 
  Country: None (occurrence: None)
  Receive Date: 20090312
  Receipt Date: 20090312
  Transmission Date: 20090719
  Serious: Yes (Hospitalization)
  Sender: FDA-Public Use
  Company Number: None

PATIENT
  Age: 68 Year
  Sex: Female
  Weight: 72.5755 kg

DRUGS (1)
  1. LEVAQUIN [Suspect]
     Indication: URINARY TRACT INFECTION
     Dosage: 500 MG 2/DAY PO
     Route: 048
     Dates: start: 20090310, end: 20090311

REACTIONS (5)
  - ASTHENIA [None]
  - BLOOD PRESSURE INCREASED [None]
  - DYSPNOEA [None]
  - HEART RATE INCREASED [None]
  - PALPITATIONS [None]
